FAERS Safety Report 18322571 (Version 2)
Quarter: 2020Q4

REPORT INFORMATION
  Report Type: Spontaneous
  Country: US (occurrence: US)
  Receive Date: 20200929
  Receipt Date: 20201008
  Transmission Date: 20210113
  Serious: No
  Sender: FDA-Public Use
  Company Number: US-UNITED THERAPEUTICS-UNT-2020-012645

PATIENT
  Sex: Female
  Weight: 81.63 kg

DRUGS (7)
  1. TADALAFIL. [Concomitant]
     Active Substance: TADALAFIL
     Indication: PRODUCT USED FOR UNKNOWN INDICATION
     Dosage: UNK
     Route: 065
  2. REMODULIN [Suspect]
     Active Substance: TREPROSTINIL
     Dosage: 0.082 ?G/KG, CONTINUING
     Route: 058
  3. REMODULIN [Suspect]
     Active Substance: TREPROSTINIL
     Dosage: 0.075 ?G/KG, CONTINUING
     Route: 058
  4. COUMADIN [Concomitant]
     Active Substance: WARFARIN SODIUM
     Indication: PRODUCT USED FOR UNKNOWN INDICATION
     Dosage: UNK
     Route: 065
  5. LETAIRIS [Concomitant]
     Active Substance: AMBRISENTAN
     Indication: PRODUCT USED FOR UNKNOWN INDICATION
     Dosage: UNK
     Route: 065
  6. REMODULIN [Suspect]
     Active Substance: TREPROSTINIL
     Indication: PULMONARY ARTERIAL HYPERTENSION
     Dosage: UNK, CONTINUING
     Route: 058
     Dates: start: 20120117
  7. REMODULIN [Suspect]
     Active Substance: TREPROSTINIL
     Dosage: 0.091 ?G/KG, CONTINUING
     Route: 058

REACTIONS (9)
  - Infusion site discharge [Unknown]
  - Purulent discharge [Unknown]
  - Pain in extremity [Not Recovered/Not Resolved]
  - Infusion site erythema [Unknown]
  - Infusion site thrombosis [Unknown]
  - Infusion site swelling [Unknown]
  - Device dislocation [Unknown]
  - Infusion site irritation [Unknown]
  - Infusion site pain [Unknown]

NARRATIVE: CASE EVENT DATE: 2020
